FAERS Safety Report 9936234 (Version 1)
Quarter: 2014Q1

REPORT INFORMATION
  Report Type: Spontaneous
  Country: US (occurrence: US)
  Receive Date: 20140228
  Receipt Date: 20140228
  Transmission Date: 20141002
  Serious: No
  Sender: FDA-Public Use
  Company Number: US-AMGEN-USASP2014000049

PATIENT
  Age: 58 Year
  Sex: Female

DRUGS (3)
  1. ENBREL [Suspect]
     Indication: RHEUMATOID ARTHRITIS
     Dosage: 25 MG, 2 TIMES/WK
     Route: 058
     Dates: start: 1993
  2. VITAMIN D                          /00107901/ [Concomitant]
     Dosage: UNK
  3. ARMOUR THYROID [Concomitant]
     Dosage: UNK

REACTIONS (2)
  - Bronchitis [Unknown]
  - Sinusitis [Unknown]
